FAERS Safety Report 26055871 (Version 1)
Quarter: 2025Q4

REPORT INFORMATION
  Report Type: Spontaneous
  Country: US (occurrence: US)
  Receive Date: 20251118
  Receipt Date: 20251118
  Transmission Date: 20260118
  Serious: No
  Sender: ROCHE
  Company Number: US-ROCHE-10000437719

PATIENT
  Sex: Female

DRUGS (8)
  1. XOLAIR [Suspect]
     Active Substance: OMALIZUMAB
     Indication: Urticaria
     Dosage: FORM STRENGTH: 300MG/2ML
     Route: 058
     Dates: start: 202509
  2. SPIRIVA [Concomitant]
     Active Substance: TIOTROPIUM BROMIDE MONOHYDRATE
  3. CHLOROXYLENOL [Concomitant]
     Active Substance: CHLOROXYLENOL
  4. ALBUTEROL [Concomitant]
     Active Substance: ALBUTEROL
  5. AZELASTINE [Concomitant]
     Active Substance: AZELASTINE
  6. ATENOLOL [Concomitant]
     Active Substance: ATENOLOL
  7. MONTELUKAST [Concomitant]
     Active Substance: MONTELUKAST
  8. ZYRTEC [Concomitant]
     Active Substance: CETIRIZINE HYDROCHLORIDE

REACTIONS (1)
  - Drug hypersensitivity [Unknown]
